FAERS Safety Report 20826567 (Version 5)
Quarter: 2022Q4

REPORT INFORMATION
  Report Type: Report from Study
  Country: US (occurrence: US)
  Receive Date: 20220513
  Receipt Date: 20221221
  Transmission Date: 20230113
  Serious: Yes (Other)
  Sender: FDA-Public Use
  Company Number: US-UCBSA-2022026183

PATIENT
  Age: 63 Year
  Sex: Female

DRUGS (1)
  1. CERTOLIZUMAB PEGOL [Suspect]
     Active Substance: CERTOLIZUMAB PEGOL
     Indication: Psoriasis
     Dosage: 400 MILLIGRAM, EV 2 WEEKS(QOW)
     Dates: start: 20220501, end: 2022

REACTIONS (8)
  - Loss of personal independence in daily activities [Not Recovered/Not Resolved]
  - Spinal fusion surgery [Not Recovered/Not Resolved]
  - Injection site pain [Not Recovered/Not Resolved]
  - Pain in extremity [Not Recovered/Not Resolved]
  - Middle ear effusion [Unknown]
  - Wrong technique in product usage process [Unknown]
  - Inappropriate schedule of product administration [Unknown]
  - Therapy interrupted [Unknown]

NARRATIVE: CASE EVENT DATE: 20220501
